FAERS Safety Report 20470885 (Version 1)
Quarter: 2022Q1

REPORT INFORMATION
  Report Type: Spontaneous
  Country: US (occurrence: US)
  Receive Date: 20220214
  Receipt Date: 20220214
  Transmission Date: 20220423
  Serious: No
  Sender: FDA-Public Use
  Company Number: US-NOVARTISTESTPH-NVSC2022US031859

PATIENT
  Sex: Female

DRUGS (1)
  1. ALPRAZOLAM ER [Suspect]
     Active Substance: ALPRAZOLAM
     Indication: Product used for unknown indication
     Dosage: 0.5 MG, BID
     Route: 065

REACTIONS (1)
  - Abdominal discomfort [Unknown]
